FAERS Safety Report 4274628-6 (Version None)
Quarter: 2004Q1

REPORT INFORMATION
  Report Type: 
  Country: None (occurrence: None)
  Receive Date: 20040120
  Receipt Date: 20040120
  Transmission Date: 20041129
  Serious: No
  Sender: FDA-Public Use
  Company Number: None

PATIENT
  Age: 54 Year
  Sex: Female
  Weight: 73.4827 kg

DRUGS (10)
  1. ANZEMET [Suspect]
     Indication: POST PROCEDURAL NAUSEA
     Dosage: 100 MG ONE DOSE ORAL
     Route: 048
     Dates: start: 20040115, end: 20040115
  2. ANZEMET [Suspect]
     Indication: POST PROCEDURAL VOMITING
     Dosage: 100 MG ONE DOSE ORAL
     Route: 048
     Dates: start: 20040115, end: 20040115
  3. DEXAMETHASONE [Suspect]
     Indication: POST PROCEDURAL NAUSEA
     Dosage: 20 MG ONE DOSE ORAL
     Route: 048
     Dates: start: 20040115, end: 20040115
  4. DEXAMETHASONE [Suspect]
     Indication: POST PROCEDURAL VOMITING
     Dosage: 20 MG ONE DOSE ORAL
     Route: 048
     Dates: start: 20040115, end: 20040115
  5. CYCLOPHOSPHAMIDE [Concomitant]
  6. DOXORUBICIN HYDROCHLORIDE [Concomitant]
  7. COMPAZINE [Concomitant]
  8. XANAX [Concomitant]
  9. ANTIVERT [Concomitant]
  10. ZANTAC [Concomitant]

REACTIONS (5)
  - ANXIETY [None]
  - FEELING ABNORMAL [None]
  - NIGHTMARE [None]
  - SUICIDAL IDEATION [None]
  - TREMOR [None]
